FAERS Safety Report 11878851 (Version 1)
Quarter: 2015Q4

REPORT INFORMATION
  Report Type: Spontaneous
  Country: GB (occurrence: GB)
  Receive Date: 20151230
  Receipt Date: 20151230
  Transmission Date: 20160305
  Serious: Yes (Life-Threatening)
  Sender: FDA-Public Use
  Company Number: GB-GE HEALTHCARE MEDICAL DIAGNOSTICS-M123-PR-1512S-0014

PATIENT
  Age: 19 Year
  Sex: Female
  Weight: 75.29 kg

DRUGS (4)
  1. ADREVIEW [Suspect]
     Active Substance: IOBENGUANE I-123
     Indication: DIAGNOSTIC PROCEDURE
  2. ADREVIEW [Suspect]
     Active Substance: IOBENGUANE I-123
     Indication: INVESTIGATION
     Route: 042
     Dates: start: 20151124, end: 20151124
  3. NORTRIPTYLINE [Concomitant]
     Active Substance: NORTRIPTYLINE
     Dates: end: 20151122
  4. DESOGESTREL [Concomitant]
     Active Substance: DESOGESTREL
     Dates: end: 20151122

REACTIONS (4)
  - Tremor [Recovered/Resolved]
  - Burning sensation [Recovered/Resolved]
  - Rash erythematous [Recovered/Resolved]
  - Dyspnoea [Recovered/Resolved]

NARRATIVE: CASE EVENT DATE: 20151124
